FAERS Safety Report 8145449-9 (Version None)
Quarter: 2012Q1

REPORT INFORMATION
  Report Type: 
  Country: None (occurrence: None)
  Receive Date: 20120214
  Receipt Date: 20120130
  Transmission Date: 20120608
  Serious: Yes (Life-Threatening)
  Sender: FDA-Public Use
  Company Number: 2012SGN00039

PATIENT
  Age: 75 Year
  Sex: Male
  Weight: 97.5234 kg

DRUGS (17)
  1. AXID [Concomitant]
  2. LORTAB [Concomitant]
  3. ZETIA [Concomitant]
  4. ASPIRIN [Concomitant]
  5. GLIPIZIDE [Concomitant]
  6. VASOTEC [Concomitant]
  7. COLCHICINE [Concomitant]
  8. NIACIN [Concomitant]
  9. NEURONTIN [Concomitant]
  10. ZANTAC [Concomitant]
  11. BRENTUXIMAB VEDOTIN (BRENTUXIMAB VEDOTIN) INJECTION [Suspect]
     Indication: SQUAMOUS CELL CARCINOMA
     Dosage: 1.8 MG/KG, Q21D, INTRAVENOUS
     Route: 042
     Dates: start: 20120118, end: 20120118
  12. CARDIZEM [Concomitant]
  13. GEMFIBROZIL [Concomitant]
  14. LASIX [Concomitant]
  15. MAGNESIUM (MAGNESIUM) [Concomitant]
  16. TACROLIMUS [Concomitant]
  17. FISH OIL (FISH OIL) [Concomitant]

REACTIONS (14)
  - ABDOMINAL PAIN [None]
  - DIARRHOEA [None]
  - HALLUCINATION, VISUAL [None]
  - DYSPNOEA [None]
  - VOMITING [None]
  - ASPARTATE AMINOTRANSFERASE INCREASED [None]
  - NAUSEA [None]
  - DYSSTASIA [None]
  - HYPOPHAGIA [None]
  - RASH PRURITIC [None]
  - MUSCULAR WEAKNESS [None]
  - BLOOD PRESSURE DECREASED [None]
  - RENAL TUBULAR NECROSIS [None]
  - MYALGIA [None]
